FAERS Safety Report 8003432-8 (Version None)
Quarter: 2011Q4

REPORT INFORMATION
  Report Type: 
  Country: None (occurrence: None)
  Receive Date: 20111222
  Receipt Date: 20111222
  Transmission Date: 20120403
  Serious: Yes (Other)
  Sender: FDA-Public Use
  Company Number: None

PATIENT
  Sex: Female
  Weight: 50.348 kg

DRUGS (2)
  1. FLUOXETINE [Concomitant]
     Route: 048
  2. RISPERIDONE [Suspect]
     Indication: MAJOR DEPRESSION
     Dosage: 0.25 MG
     Route: 048
     Dates: start: 20111123, end: 20111221

REACTIONS (1)
  - TACHYCARDIA [None]
